FAERS Safety Report 6761742-6 (Version None)
Quarter: 2010Q2

REPORT INFORMATION
  Report Type: 
  Country: None (occurrence: None)
  Receive Date: 20100609
  Receipt Date: 20100531
  Transmission Date: 20101027
  Serious: Yes (Hospitalization)
  Sender: FDA-Public Use
  Company Number: FR-JNJFOC-20100401051

PATIENT
  Age: 53 Year
  Sex: Female

DRUGS (8)
  1. REMICADE [Suspect]
     Indication: SPONDYLOARTHROPATHY
     Route: 042
  2. REMICADE [Suspect]
     Route: 042
  3. NABUCOX [Concomitant]
  4. CORTANCYL [Concomitant]
  5. OXYCONTIN [Concomitant]
  6. PARIET [Concomitant]
  7. ENBREL [Concomitant]
     Indication: SPONDYLOARTHROPATHY
  8. HUMIRA [Concomitant]
     Indication: SPONDYLOARTHROPATHY

REACTIONS (3)
  - BASAL CELL CARCINOMA [None]
  - DRUG INEFFECTIVE [None]
  - TRANSAMINASES INCREASED [None]
